FAERS Safety Report 8736010 (Version 2)
Quarter: 2012Q4

REPORT INFORMATION
  Report Type: 
  Country: US (occurrence: US)
  Receive Date: 20120822
  Receipt Date: 20121022
  Transmission Date: 20130627
  Serious: No
  Sender: FDA-Public Use
  Company Number: US-ASTRAZENECA-2012SE57862

PATIENT
  Age: 55 Year
  Sex: Female

DRUGS (2)
  1. SEROQUEL [Suspect]
     Indication: ANXIETY
     Route: 048
  2. KLONOPIN [Concomitant]

REACTIONS (5)
  - Weight decreased [Unknown]
  - Mental impairment [Unknown]
  - Malaise [Unknown]
  - Dry mouth [Unknown]
  - Off label use [Unknown]
